FAERS Safety Report 4665558-6 (Version None)
Quarter: 2005Q2

REPORT INFORMATION
  Report Type: 
  Country: None (occurrence: None)
  Receive Date: 20050519
  Receipt Date: 20040329
  Transmission Date: 20051028
  Serious: No
  Sender: FDA-Public Use
  Company Number: US-BRISTOL-MYERS SQUIBB COMPANY-12545471

PATIENT
  Age: 84 Year
  Sex: Female
  Weight: 55 kg

DRUGS (11)
  1. MONOPRIL [Suspect]
     Indication: HYPERTENSION
     Dosage: DOSAGE: 20MG IN THE A.M. AND 1/2 OF A 20MG TABLET IN THE P.M.
     Route: 048
  2. TOPROL-XL [Concomitant]
  3. XANAX [Concomitant]
  4. DARVOCET [Concomitant]
  5. HERB-LAX [Concomitant]
  6. EX-LAX [Concomitant]
  7. SENOKOT [Concomitant]
  8. LASIX [Concomitant]
  9. POTASSIUM CHLORIDE [Concomitant]
  10. THYROID TAB [Concomitant]
  11. LANOXIN [Concomitant]

REACTIONS (7)
  - HAIR DISORDER [None]
  - HALLUCINATION, AUDITORY [None]
  - NODULE [None]
  - PHARYNGEAL OEDEMA [None]
  - PRURITUS [None]
  - THROAT IRRITATION [None]
  - TINNITUS [None]
